FAERS Safety Report 4816935-1 (Version None)
Quarter: 2005Q4

REPORT INFORMATION
  Report Type: 
  Country: None (occurrence: None)
  Receive Date: 20051101
  Receipt Date: 20051028
  Transmission Date: 20060501
  Serious: Yes (Life-Threatening)
  Sender: FDA-Public Use
  Company Number: IT-MERCK-0510ITA00033

PATIENT
  Age: 62 Year
  Sex: Female

DRUGS (1)
  1. INVANZ [Suspect]
     Indication: PANCREATITIS NECROTISING
     Route: 051
     Dates: start: 20051001, end: 20051006

REACTIONS (2)
  - BRONCHOSPASM [None]
  - LARYNGOSPASM [None]
